FAERS Safety Report 8449911-0 (Version None)
Quarter: 2012Q2

REPORT INFORMATION
  Report Type: 
  Country: None (occurrence: None)
  Receive Date: 20120620
  Receipt Date: 20120614
  Transmission Date: 20120825
  Serious: Yes (Hospitalization)
  Sender: FDA-Public Use
  Company Number: PHHO2012DE009014

PATIENT
  Age: 43 Year
  Sex: Female
  Weight: 50 kg

DRUGS (4)
  1. HEPARIN [Concomitant]
     Indication: PROPHYLAXIS
     Dosage: 15000 IU, UNK
     Route: 042
     Dates: start: 20111105, end: 20111114
  2. MYCOPHENOLIC ACID [Suspect]
     Indication: PANCREAS TRANSPLANT
     Dosage: 360 MG X4
     Route: 048
     Dates: start: 20110511
  3. PROGRAF [Suspect]
     Indication: PANCREAS TRANSPLANT
     Dosage: 4 MG, BID
     Route: 048
     Dates: start: 20110511, end: 20111111
  4. TACROLIMUS [Suspect]
     Indication: PANCREAS TRANSPLANT
     Dosage: 5 MG, QD
     Route: 048

REACTIONS (1)
  - ARTERIAL THROMBOSIS [None]
